FAERS Safety Report 25431608 (Version 1)
Quarter: 2025Q2

REPORT INFORMATION
  Report Type: Spontaneous
  Country: US (occurrence: US)
  Receive Date: 20250613
  Receipt Date: 20250613
  Transmission Date: 20250717
  Serious: Yes (Death, Life-Threatening, Hospitalization)
  Sender: ADAPTIS PHARMA INDIA
  Company Number: US-Adaptis Pharma Private Limited-2178493

PATIENT
  Age: 23 Year
  Sex: Female

DRUGS (4)
  1. PREGABALIN [Suspect]
     Active Substance: PREGABALIN
     Indication: Agitation
  2. ISONIAZID [Interacting]
     Active Substance: ISONIAZID
  3. VALPROIC ACID [Interacting]
     Active Substance: VALPROIC ACID
  4. LITHIUM [Interacting]
     Active Substance: LITHIUM

REACTIONS (3)
  - Serotonin syndrome [Not Recovered/Not Resolved]
  - Drug interaction [Not Recovered/Not Resolved]
  - Tuberculosis [Fatal]
